FAERS Safety Report 8808773 (Version 1)
Quarter: 2012Q4

REPORT INFORMATION
  Report Type: 
  Country: US (occurrence: US)
  Receive Date: 20120926
  Receipt Date: 20120926
  Transmission Date: 20130627
  Serious: Yes (Hospitalization, Other)
  Sender: FDA-Public Use
  Company Number: US-PFIZER INC-2012234362

PATIENT
  Age: 79 Year
  Sex: Female
  Weight: 58.05 kg

DRUGS (6)
  1. TOVIAZ [Suspect]
     Indication: HYPERTONIC BLADDER
     Dosage: 4 mg, daily at night
     Route: 048
  2. TOVIAZ [Suspect]
     Dosage: 4 mg, on and off
     Dates: start: 201206, end: 201206
  3. VICODIN [Suspect]
     Indication: PAIN
     Dosage: UNK
  4. NEURONTIN [Concomitant]
     Indication: NEUROPATHY PERIPHERAL
     Dosage: 600 mg, 2x/day
  5. AMITRIPTYLINE [Concomitant]
     Indication: NEUROPATHY PERIPHERAL
     Dosage: 50 mg, daily
  6. RECLAST [Concomitant]
     Indication: OSTEOPOROSIS
     Dosage: UNK, every year

REACTIONS (4)
  - Fall [Unknown]
  - Upper limb fracture [Unknown]
  - Dry mouth [Unknown]
  - Drug ineffective [Unknown]
